FAERS Safety Report 13840435 (Version 1)
Quarter: 2017Q3

REPORT INFORMATION
  Report Type: Spontaneous
  Country: US (occurrence: US)
  Receive Date: 20170807
  Receipt Date: 20170807
  Transmission Date: 20171127
  Serious: Yes (Death, Other)
  Sender: FDA-Public Use
  Company Number: US-PFIZER INC-2017337965

PATIENT
  Age: 76 Year
  Sex: Female
  Weight: 90.7 kg

DRUGS (1)
  1. CHANTIX [Suspect]
     Active Substance: VARENICLINE TARTRATE
     Indication: SMOKING CESSATION THERAPY
     Dosage: UNK

REACTIONS (6)
  - Hallucination, auditory [Unknown]
  - Death [Fatal]
  - Fall [Unknown]
  - Hallucination, visual [Unknown]
  - Coma [Unknown]
  - Illusion [Unknown]
